FAERS Safety Report 16315020 (Version 2)
Quarter: 2019Q2

REPORT INFORMATION
  Report Type: Spontaneous
  Country: JP (occurrence: JP)
  Receive Date: 20190515
  Receipt Date: 20190521
  Transmission Date: 20190711
  Serious: Yes (Death)
  Sender: FDA-Public Use
  Company Number: JP-PFIZER INC-2018249692

PATIENT
  Age: 88 Year
  Sex: Male

DRUGS (1)
  1. BOSULIF [Suspect]
     Active Substance: BOSUTINIB MONOHYDRATE
     Dosage: 100 MG, DAILY

REACTIONS (2)
  - Infection [Fatal]
  - Therapeutic response decreased [Unknown]
